FAERS Safety Report 5600894-8 (Version None)
Quarter: 2008Q1

REPORT INFORMATION
  Report Type: 
  Country: None (occurrence: None)
  Receive Date: 20080124
  Receipt Date: 20080117
  Transmission Date: 20080703
  Serious: Yes (Life-Threatening)
  Sender: FDA-Public Use
  Company Number: CN-BAYER-200811090GPV

PATIENT
  Age: 46 Year
  Sex: Female
  Weight: 79 kg

DRUGS (1)
  1. ULTRAVIST 300 [Suspect]
     Indication: VENTILATION/PERFUSION SCAN
     Dosage: AS USED: 100 ML
     Route: 042
     Dates: start: 20080110, end: 20080110

REACTIONS (3)
  - ANAPHYLACTIC REACTION [None]
  - CYANOSIS [None]
  - LOSS OF CONSCIOUSNESS [None]
